FAERS Safety Report 6823817-2 (Version None)
Quarter: 2010Q3

REPORT INFORMATION
  Report Type: 
  Country: None (occurrence: None)
  Receive Date: 20100708
  Receipt Date: 20060913
  Transmission Date: 20110219
  Serious: No
  Sender: FDA-Public Use
  Company Number: US-PFIZER INC-2006111834

PATIENT
  Sex: Female
  Weight: 83.91 kg

DRUGS (7)
  1. CHANTIX [Suspect]
     Indication: EX-TOBACCO USER
     Dates: start: 20060908
  2. XANAX [Concomitant]
  3. NEURONTIN [Concomitant]
  4. MONTELUKAST SODIUM [Concomitant]
  5. ZETIA [Concomitant]
  6. TRICOR [Concomitant]
  7. HYPNOTICS AND SEDATIVES [Concomitant]

REACTIONS (5)
  - ASTHENIA [None]
  - DIARRHOEA [None]
  - HYPOAESTHESIA [None]
  - NAUSEA [None]
  - PARAESTHESIA [None]
